FAERS Safety Report 23224869 (Version 1)
Quarter: 2023Q4

REPORT INFORMATION
  Report Type: Report from Study
  Country: US (occurrence: US)
  Receive Date: 20231124
  Receipt Date: 20231124
  Transmission Date: 20240110
  Serious: Yes (Hospitalization, Other)
  Sender: FDA-Public Use
  Company Number: US-UCBSA-2023055544

PATIENT
  Age: 28 Year
  Sex: Female

DRUGS (1)
  1. NAYZILAM [Suspect]
     Active Substance: MIDAZOLAM
     Indication: Seizure
     Dosage: UNK
     Dates: start: 2021

REACTIONS (4)
  - Inflammatory bowel disease [Unknown]
  - Seizure [Unknown]
  - Drug ineffective [Unknown]
  - Adverse drug reaction [Unknown]
